FAERS Safety Report 7987905-X (Version None)
Quarter: 2011Q4

REPORT INFORMATION
  Report Type: 
  Country: None (occurrence: None)
  Receive Date: 20111216
  Receipt Date: 20111216
  Transmission Date: 20120403
  Serious: Yes (Hospitalization, Other)
  Sender: FDA-Public Use
  Company Number: BR-ABBOTT-11P-020-0712347-00

PATIENT
  Sex: Female

DRUGS (1)
  1. HUMIRA [Suspect]
     Indication: ANKYLOSING SPONDYLITIS
     Dates: end: 20110201

REACTIONS (5)
  - HYPOAESTHESIA [None]
  - CEREBROVASCULAR ACCIDENT [None]
  - PARALYSIS [None]
  - SPEECH DISORDER [None]
  - SLOW SPEECH [None]
